FAERS Safety Report 6394019-1 (Version None)
Quarter: 2009Q4

REPORT INFORMATION
  Report Type: 
  Country: None (occurrence: None)
  Receive Date: 20091008
  Receipt Date: 20090924
  Transmission Date: 20100525
  Serious: Yes (Hospitalization)
  Sender: FDA-Public Use
  Company Number: PHHY2009NO41450

PATIENT
  Sex: Female

DRUGS (6)
  1. GLEEVEC [Suspect]
     Indication: CHRONIC MYELOID LEUKAEMIA
     Dosage: 400 MG DAILY, TOGETHER WITH FOOD
     Route: 048
     Dates: start: 20090806, end: 20090819
  2. ALLOPURINOL [Interacting]
     Indication: CHRONIC MYELOID LEUKAEMIA
     Dosage: 600 MG/DAY
     Route: 048
     Dates: start: 20090722, end: 20090819
  3. FLUTIDE [Concomitant]
     Indication: CHRONIC OBSTRUCTIVE PULMONARY DISEASE
     Dosage: 2 X 2, UNK
  4. SEREVENT [Concomitant]
     Indication: CHRONIC OBSTRUCTIVE PULMONARY DISEASE
     Dosage: 50 MICROG X 4, UNK
  5. ATROVENT [Concomitant]
     Indication: CHRONIC OBSTRUCTIVE PULMONARY DISEASE
     Dosage: 20 MICROG X 4, UNK
  6. AERIUS [Concomitant]
     Indication: HYPERSENSITIVITY
     Dosage: 50 MG DAILY

REACTIONS (5)
  - ABDOMINAL DISCOMFORT [None]
  - DRUG INTERACTION [None]
  - HEPATIC ENZYME INCREASED [None]
  - NAUSEA [None]
  - RASH [None]
